FAERS Safety Report 8481125-0 (Version None)
Quarter: 2012Q3

REPORT INFORMATION
  Report Type: 
  Country: None (occurrence: None)
  Receive Date: 20120702
  Receipt Date: 20120626
  Transmission Date: 20120928
  Serious: Yes (Other)
  Sender: FDA-Public Use
  Company Number: PHHY2012FR025419

PATIENT
  Sex: Female
  Weight: 12 kg

DRUGS (11)
  1. PHENOXYMETHYL PENICILLIN [Concomitant]
     Indication: ANTIBIOTIC PROPHYLAXIS
     Dosage: 250000 IU, BID
     Dates: start: 20090415
  2. EXJADE [Suspect]
     Indication: IRON OVERLOAD
     Dosage: 250 MG, DAILY
     Route: 048
     Dates: start: 20110626, end: 20111223
  3. LIORESAL [Suspect]
     Dosage: 0.4 MG/KG, UNK
     Route: 048
     Dates: start: 20120106, end: 20120114
  4. ACETAMINOPHEN [Suspect]
     Dosage: 1 DF (CORRESPONDING TO WEIGHT OF 11 KG), QID
     Dates: start: 20110414
  5. ARTANE [Concomitant]
     Indication: EXTRAPYRAMIDAL DISORDER
     Dosage: 3 MG, DAILY
     Dates: start: 20110101
  6. LIORESAL [Suspect]
     Indication: MUSCLE SPASTICITY
     Dosage: 0.4 MG/KG, UNK
     Dates: start: 20111201, end: 20111223
  7. ACETAMINOPHEN [Suspect]
     Dosage: AS NEEDED
     Dates: start: 20111223
  8. RED BLOOD CELLS [Concomitant]
     Dosage: 9 U, UNK
     Dates: start: 20110701, end: 20120101
  9. EXJADE [Suspect]
     Dosage: 125 MG, DAILY
     Route: 048
     Dates: start: 20120204
  10. AMITRIPTYLINE HCL [Suspect]
     Indication: ANALGESIC THERAPY
     Dosage: 10 MG, DAILY
     Dates: start: 20110101
  11. FOLIC ACID [Concomitant]
     Indication: FOLATE DEFICIENCY
     Dosage: 5 MG, QD
     Dates: start: 20090415

REACTIONS (4)
  - HYPERBILIRUBINAEMIA [None]
  - ASPARTATE AMINOTRANSFERASE INCREASED [None]
  - CYTOLYTIC HEPATITIS [None]
  - ALANINE AMINOTRANSFERASE INCREASED [None]
